FAERS Safety Report 4942178-7 (Version None)
Quarter: 2006Q1

REPORT INFORMATION
  Report Type: 
  Country: None (occurrence: None)
  Receive Date: 20060313
  Receipt Date: 20050817
  Transmission Date: 20060701
  Serious: No
  Sender: FDA-Public Use
  Company Number: 200512476EU

PATIENT
  Age: 50 Year
  Sex: Female

DRUGS (5)
  1. NICORETTE [Suspect]
  2. QUETIAPINE [Concomitant]
  3. MULTIPLE MEDICATIONS [Concomitant]
     Indication: DRUG USE FOR UNKNOWN INDICATION
  4. DICLOFENAC EPOLAMINE PATCH [Concomitant]
  5. EFFEXOR [Concomitant]

REACTIONS (4)
  - DEPENDENCE [None]
  - DRUG INEFFECTIVE [None]
  - ELEVATED MOOD [None]
  - OVERDOSE [None]
